FAERS Safety Report 15108977 (Version 7)
Quarter: 2020Q3

REPORT INFORMATION
  Report Type: Report from Study
  Country: None (occurrence: TR)
  Receive Date: 20180705
  Receipt Date: 20200708
  Transmission Date: 20201102
  Serious: Yes (Hospitalization, Other)
  Sender: FDA-Public Use
  Company Number: TR-ABBVIE-18S-161-2408232-00

PATIENT
  Sex: Female

DRUGS (8)
  1. ENTERAL NUTRITION SOLUTION [Concomitant]
     Indication: HYPOPHAGIA
     Route: 050
     Dates: end: 20180702
  2. CIPRALEX [Concomitant]
     Active Substance: ESCITALOPRAM OXALATE
     Route: 050
     Dates: start: 20180707
  3. CIPRALEX [Concomitant]
     Active Substance: ESCITALOPRAM OXALATE
     Indication: PARKINSON^S DISEASE
     Route: 050
     Dates: end: 20180703
  4. KEPPRA [Concomitant]
     Active Substance: LEVETIRACETAM
     Indication: PARKINSON^S DISEASE
     Route: 050
     Dates: end: 201805
  5. LEVODOPA [Concomitant]
     Active Substance: LEVODOPA
     Indication: PRODUCT USED FOR UNKNOWN INDICATION
     Route: 048
     Dates: start: 201807
  6. DUODOPA [Suspect]
     Active Substance: CARBIDOPA\LEVODOPA
     Indication: PARKINSON^S DISEASE
     Dosage: MORNING DOSE: 4.50 ML CONTINUING DOSE: 2.40 ML EXTRA DOSE: 2.00 ML?INTERRUPTED
     Route: 050
     Dates: start: 20140121, end: 20180705
  7. DUODOPA [Suspect]
     Active Substance: CARBIDOPA\LEVODOPA
     Route: 050
     Dates: start: 20180707
  8. LIORESAL [Concomitant]
     Active Substance: BACLOFEN
     Indication: PARKINSON^S DISEASE
     Route: 050
     Dates: end: 201805

REACTIONS (3)
  - Freezing phenomenon [Unknown]
  - Stoma site discharge [Recovered/Resolved]
  - Embedded device [Recovered/Resolved]
